FAERS Safety Report 6170504-2 (Version None)
Quarter: 2009Q2

REPORT INFORMATION
  Report Type: 
  Country: None (occurrence: None)
  Receive Date: 20090427
  Receipt Date: 20090427
  Transmission Date: 20091009
  Serious: No
  Sender: FDA-Public Use
  Company Number: None

PATIENT
  Age: 67 Year
  Sex: Female
  Weight: 71 kg

DRUGS (7)
  1. CYTARABINE [Suspect]
     Indication: ACUTE MYELOID LEUKAEMIA
     Dosage: 1.5 GM / M2 IV Q12 HOUR
     Route: 042
     Dates: start: 20090114, end: 20090119
  2. TOPROL-XL [Concomitant]
  3. MAGOX [Concomitant]
  4. NAFCILLIN SODIUM [Concomitant]
  5. POSACONAZOLE [Concomitant]
  6. PRAVASTATIN [Concomitant]
  7. LANSOPRAZOLE [Concomitant]

REACTIONS (3)
  - COORDINATION ABNORMAL [None]
  - FALL [None]
  - NEUROTOXICITY [None]
